FAERS Safety Report 15095097 (Version 1)
Quarter: 2018Q3

REPORT INFORMATION
  Report Type: Spontaneous
  Country: US (occurrence: US)
  Receive Date: 20180702
  Receipt Date: 20180702
  Transmission Date: 20181010
  Serious: No
  Sender: FDA-Public Use
  Company Number: US-ASTRAZENECA-2018SE81340

PATIENT
  Age: 27788 Day
  Sex: Female
  Weight: 81.6 kg

DRUGS (2)
  1. FASENRA [Suspect]
     Active Substance: BENRALIZUMAB
     Indication: ASTHMA
     Dosage: ONCE A MONTH FOR FIRST THREE DOSES
     Route: 058
     Dates: start: 20180611
  2. LEVAALBUTEROL [Concomitant]
     Dosage: 0.63 UNKNOWN UNIT, AS REQUIRED
     Route: 055
     Dates: start: 20180613

REACTIONS (3)
  - Paraesthesia [Not Recovered/Not Resolved]
  - Tremor [Not Recovered/Not Resolved]
  - Paraesthesia oral [Not Recovered/Not Resolved]

NARRATIVE: CASE EVENT DATE: 20180613
